FAERS Safety Report 10222692 (Version 1)
Quarter: 2014Q2

REPORT INFORMATION
  Report Type: Spontaneous
  Country: US (occurrence: US)
  Receive Date: 20140606
  Receipt Date: 20140606
  Transmission Date: 20141212
  Serious: No
  Sender: FDA-Public Use
  Company Number: US-GILEAD-2013-0084131

PATIENT
  Age: 25 Year
  Sex: Female

DRUGS (1)
  1. TRUVADA [Suspect]
     Indication: PROPHYLAXIS
     Dosage: 500 MG, UNK
     Dates: start: 20130921

REACTIONS (1)
  - Vomiting [Unknown]
